FAERS Safety Report 19748648 (Version 1)
Quarter: 2021Q3

REPORT INFORMATION
  Report Type: Spontaneous
  Country: US (occurrence: US)
  Receive Date: 20210825
  Receipt Date: 20210825
  Transmission Date: 20211014
  Serious: Yes (Hospitalization)
  Sender: FDA-Public Use
  Company Number: None

PATIENT
  Age: 61 Year
  Sex: Male

DRUGS (5)
  1. STELARA [Suspect]
     Active Substance: USTEKINUMAB
     Indication: CROHN^S DISEASE
     Dosage: ?          OTHER FREQUENCY:Q 4 WEEKS;?
     Route: 058
     Dates: start: 20180501
  2. LISINOPRIL AND HYDROCHLOROTHIAZIDE [Concomitant]
     Active Substance: HYDROCHLOROTHIAZIDE\LISINOPRIL
  3. BUDESONIDE. [Concomitant]
     Active Substance: BUDESONIDE
  4. ESOMEPRA MAG [Concomitant]
  5. BUPROPION. [Concomitant]
     Active Substance: BUPROPION

REACTIONS (2)
  - Crohn^s disease [None]
  - Small intestinal obstruction [None]

NARRATIVE: CASE EVENT DATE: 20210816
